FAERS Safety Report 6883322-4 (Version None)
Quarter: 2010Q3

REPORT INFORMATION
  Report Type: 
  Country: None (occurrence: None)
  Receive Date: 20100727
  Receipt Date: 20080219
  Transmission Date: 20110219
  Serious: Yes (Hospitalization, Other)
  Sender: FDA-Public Use
  Company Number: US-PFIZER INC-2007032779

PATIENT
  Sex: Female

DRUGS (2)
  1. CELEBREX [Suspect]
     Indication: ARTHRITIS
     Dates: start: 20000501, end: 20000901
  2. VIOXX [Suspect]
     Indication: ARTHRITIS
     Dosage: ONE OR TWO TIMES PER DAY
     Route: 048
     Dates: start: 19991101

REACTIONS (1)
  - ANGINA UNSTABLE [None]
